FAERS Safety Report 4357011-4 (Version None)
Quarter: 2004Q2

REPORT INFORMATION
  Report Type: 
  Country: None (occurrence: None)
  Receive Date: 20040512
  Receipt Date: 20040504
  Transmission Date: 20050107
  Serious: Yes (Other)
  Sender: FDA-Public Use
  Company Number: PHEH2004US04943

PATIENT
  Age: 49 Year
  Sex: Female

DRUGS (7)
  1. ZELNORM [Suspect]
     Indication: IRRITABLE BOWEL SYNDROME
     Dosage: 6 MG, BID
     Route: 048
     Dates: start: 20030801, end: 20040201
  2. ZELNORM [Suspect]
     Dosage: 6 MG, BID
     Route: 048
     Dates: start: 20040401
  3. MAXZIDE [Concomitant]
  4. INDERAL [Concomitant]
  5. WELLBUTRIN [Concomitant]
  6. NASONEX [Concomitant]
  7. NEXIUM [Concomitant]

REACTIONS (4)
  - ABDOMINAL PAIN [None]
  - DIZZINESS [None]
  - HAEMATOCHEZIA [None]
  - SYNCOPE [None]
